FAERS Safety Report 14968101 (Version 1)
Quarter: 2018Q2

REPORT INFORMATION
  Report Type: Spontaneous
  Country: FR (occurrence: FR)
  Receive Date: 20180604
  Receipt Date: 20180604
  Transmission Date: 20180711
  Serious: Yes (Hospitalization, Other)
  Sender: FDA-Public Use
  Company Number: FR-ACCORD-067590

PATIENT
  Age: 14 Year
  Sex: Female

DRUGS (4)
  1. TERCIAN [Suspect]
     Active Substance: CYAMEMAZINE
     Dosage: 1 DF, QD
     Route: 048
     Dates: start: 20150428
  2. SERTRALINE [Suspect]
     Active Substance: SERTRALINE HYDROCHLORIDE
     Dates: start: 20150211, end: 20150218
  3. ZOLOFT [Suspect]
     Active Substance: SERTRALINE HYDROCHLORIDE
     Dosage: UNK
     Dates: start: 20150211, end: 20150218
  4. ABILIFY [Suspect]
     Active Substance: ARIPIPRAZOLE
     Dosage: 10 MG, QD
     Route: 048
     Dates: start: 20150119

REACTIONS (6)
  - Mood altered [Recovering/Resolving]
  - Bipolar I disorder [Recovered/Resolved]
  - Hallucination [Recovered/Resolved]
  - Muscle rigidity [Recovered/Resolved]
  - Suicide attempt [Unknown]
  - Suicidal ideation [Recovered/Resolved]

NARRATIVE: CASE EVENT DATE: 20150218
